FAERS Safety Report 8932673 (Version 1)
Quarter: 2012Q4

REPORT INFORMATION
  Report Type: 
  Country: FR (occurrence: FR)
  Receive Date: 20121129
  Receipt Date: 20121129
  Transmission Date: 20130627
  Serious: Yes (Hospitalization)
  Sender: FDA-Public Use
  Company Number: FR-009507513-1211FRA010323

PATIENT
  Age: 60 Year
  Sex: Male

DRUGS (10)
  1. EMEND [Suspect]
     Indication: PROPHYLAXIS OF NAUSEA AND VOMITING
     Dosage: 80 mg, qd
     Route: 048
     Dates: start: 20070711, end: 20120801
  2. GEMZAR [Suspect]
     Indication: LUNG NEOPLASM MALIGNANT
     Dosage: 2400 mg, UNK
     Route: 042
     Dates: start: 20070711, end: 20120829
  3. CISPLATIN [Suspect]
     Indication: LUNG NEOPLASM MALIGNANT
     Dosage: 140 mg, qd
     Route: 042
     Dates: start: 20070711, end: 20120801
  4. ZOPHREN (ONDANSETRON) [Suspect]
     Dosage: 8 mg,
     Route: 042
     Dates: start: 20070711, end: 20120829
  5. SOLU-MEDROL [Suspect]
     Indication: PREMEDICATION
     Dosage: 80 mg, qd
     Route: 042
     Dates: start: 20070711, end: 20120801
  6. LYRICA [Suspect]
     Dosage: UNK
     Route: 048
     Dates: end: 20120907
  7. CRESTOR [Concomitant]
     Dosage: 5 mg, UNK
     Route: 048
  8. TRIATEC (RAMIPRIL) [Concomitant]
     Dosage: 5 mg, UNK
     Route: 048
  9. PANTOPRAZOLE [Concomitant]
     Dosage: 40 mg, UNK
     Route: 048
  10. EUPANTOL [Concomitant]

REACTIONS (1)
  - Interstitial lung disease [Recovering/Resolving]
